FAERS Safety Report 8530339-X (Version None)
Quarter: 2012Q3

REPORT INFORMATION
  Report Type: 
  Country: None (occurrence: None)
  Receive Date: 20120723
  Receipt Date: 20120713
  Transmission Date: 20120928
  Serious: Yes (Hospitalization)
  Sender: FDA-Public Use
  Company Number: BR-PFIZER INC-2012175024

PATIENT
  Age: 55 Year
  Sex: Male
  Weight: 91 kg

DRUGS (9)
  1. METFORMIN [Concomitant]
     Indication: DIABETES MELLITUS
  2. HYDROCHLOROTHIAZIDE [Concomitant]
  3. NOVALGIN [Concomitant]
     Dosage: 1 G, UNK
     Route: 042
  4. ROCEFING [Concomitant]
     Dosage: 1 G, UNK
     Route: 042
  5. SILYBUM MARIANUM [Concomitant]
  6. CAPTOPRIL [Concomitant]
     Indication: HYPERTENSION
  7. PANTOPRAZOLE [Suspect]
     Indication: PROPHYLAXIS
     Dosage: 40 MG, UNK
     Route: 042
  8. ASPIRIN [Concomitant]
  9. SIMVASTATIN [Concomitant]

REACTIONS (3)
  - PHLEBITIS SUPERFICIAL [None]
  - APPLICATION SITE PAIN [None]
  - HYPERAEMIA [None]
